FAERS Safety Report 7699349-9 (Version None)
Quarter: 2011Q3

REPORT INFORMATION
  Report Type: 
  Country: None (occurrence: None)
  Receive Date: 20110819
  Receipt Date: 20110810
  Transmission Date: 20111222
  Serious: Yes (Hospitalization, Other)
  Sender: FDA-Public Use
  Company Number: US-BAYER-2011-006290

PATIENT
  Age: 19 Year
  Sex: Female
  Weight: 71.655 kg

DRUGS (1)
  1. YAZ [Suspect]

REACTIONS (4)
  - PULMONARY EMBOLISM [None]
  - IRRITABLE BOWEL SYNDROME [None]
  - DYSPNOEA [None]
  - PAIN [None]
